FAERS Safety Report 4991913-0 (Version None)
Quarter: 2006Q2

REPORT INFORMATION
  Report Type: 
  Country: None (occurrence: None)
  Receive Date: 20060504
  Receipt Date: 20060427
  Transmission Date: 20061013
  Serious: Yes (Other)
  Sender: FDA-Public Use
  Company Number: US-SANOFI-SYNTHELABO-A03200602721

PATIENT
  Sex: Male

DRUGS (5)
  1. ELOXATIN [Suspect]
     Indication: COLON CANCER METASTATIC
     Route: 042
     Dates: start: 20060126, end: 20060126
  2. XELODA [Concomitant]
     Route: 048
  3. GLYBURIDE [Concomitant]
     Dosage: UNK
     Route: 048
  4. CALCIUM GLUCONATE [Concomitant]
     Route: 042
  5. MAGNESIUM [Concomitant]
     Route: 042

REACTIONS (5)
  - BLOOD GLUCOSE INCREASED [None]
  - CARPAL TUNNEL SYNDROME [None]
  - HYPOAESTHESIA [None]
  - NEUROPATHY PERIPHERAL [None]
  - THERAPEUTIC RESPONSE UNEXPECTED [None]
